FAERS Safety Report 9331503 (Version 1)
Quarter: 2013Q2

REPORT INFORMATION
  Report Type: Spontaneous
  Country: US (occurrence: US)
  Receive Date: 20130605
  Receipt Date: 20130605
  Transmission Date: 20140414
  Serious: No
  Sender: FDA-Public Use
  Company Number: US-PFIZER INC-2013169446

PATIENT
  Age: 60 Year
  Sex: Female
  Weight: 90.7 kg

DRUGS (4)
  1. LYRICA [Suspect]
     Indication: NERVE INJURY
     Dosage: 75 MG, 1X/DAY
     Route: 048
     Dates: start: 201305, end: 201305
  2. LYRICA [Suspect]
     Dosage: 50 MG, 1X/DAY
     Route: 048
     Dates: start: 201305, end: 201305
  3. LYRICA [Suspect]
     Dosage: 75 MG, 1X/DAY
     Route: 048
     Dates: start: 201305
  4. VITAMIN D3 [Concomitant]
     Dosage: ONCE A WEEK

REACTIONS (4)
  - Vision blurred [Unknown]
  - Eye disorder [Unknown]
  - Paraesthesia [Unknown]
  - Therapeutic response unexpected [Unknown]
